FAERS Safety Report 6744627-0 (Version None)
Quarter: 2010Q2

REPORT INFORMATION
  Report Type: 
  Country: None (occurrence: None)
  Receive Date: 20100526
  Receipt Date: 20100526
  Transmission Date: 20101027
  Serious: No
  Sender: FDA-Public Use
  Company Number: None

PATIENT
  Sex: Female
  Weight: 54.4316 kg

DRUGS (1)
  1. OXYCONTIN [Suspect]

REACTIONS (5)
  - FATIGUE [None]
  - HALLUCINATION, VISUAL [None]
  - INSOMNIA [None]
  - OCULAR HYPERAEMIA [None]
  - PANIC REACTION [None]
